FAERS Safety Report 11150866 (Version 3)
Quarter: 2015Q3

REPORT INFORMATION
  Report Type: Spontaneous
  Country: CA (occurrence: CA)
  Receive Date: 20150601
  Receipt Date: 20150713
  Transmission Date: 20151125
  Serious: Yes (Other)
  Sender: FDA-Public Use
  Company Number: CA-ROCHE-1523021

PATIENT
  Age: 71 Year
  Sex: Male

DRUGS (10)
  1. SYMBICORT [Concomitant]
     Active Substance: BUDESONIDE\FORMOTEROL FUMARATE DIHYDRATE
  2. XOLAIR [Suspect]
     Active Substance: OMALIZUMAB
     Indication: ASTHMA
     Route: 058
     Dates: start: 20140113
  3. XOLAIR [Suspect]
     Active Substance: OMALIZUMAB
     Route: 058
     Dates: start: 20150127
  4. XOLAIR [Suspect]
     Active Substance: OMALIZUMAB
     Route: 058
     Dates: start: 20140407
  5. XOLAIR [Suspect]
     Active Substance: OMALIZUMAB
     Route: 058
     Dates: start: 20140603
  6. SINGULAIR [Concomitant]
     Active Substance: MONTELUKAST SODIUM
  7. QVAR [Concomitant]
     Active Substance: BECLOMETHASONE DIPROPIONATE
  8. XOLAIR [Suspect]
     Active Substance: OMALIZUMAB
     Route: 058
     Dates: start: 20140210
  9. XOLAIR [Suspect]
     Active Substance: OMALIZUMAB
     Route: 058
     Dates: start: 20150113
  10. XOLAIR [Suspect]
     Active Substance: OMALIZUMAB
     Route: 058
     Dates: start: 20140617

REACTIONS (20)
  - Hypoaesthesia [Recovering/Resolving]
  - Sleep apnoea syndrome [Unknown]
  - Blood pressure systolic increased [Unknown]
  - Wound [Recovering/Resolving]
  - Ear infection bacterial [Unknown]
  - Urinary tract disorder [Unknown]
  - Nasal polyps [Unknown]
  - Acne [Recovering/Resolving]
  - Increased upper airway secretion [Unknown]
  - Concomitant disease aggravated [Unknown]
  - Seasonal allergy [Unknown]
  - Prostatic disorder [Unknown]
  - Paraesthesia [Unknown]
  - Feeling hot [Unknown]
  - Sinusitis [Unknown]
  - Hearing impaired [Unknown]
  - Respiratory rate increased [Not Recovered/Not Resolved]
  - Urine flow decreased [Unknown]
  - Ear infection [Unknown]
  - Pyrexia [Unknown]

NARRATIVE: CASE EVENT DATE: 20140210
